FAERS Safety Report 16725721 (Version 1)
Quarter: 2019Q3

REPORT INFORMATION
  Report Type: Spontaneous
  Country: CA (occurrence: CA)
  Receive Date: 20190821
  Receipt Date: 20190821
  Transmission Date: 20191005
  Serious: Yes (Other)
  Sender: FDA-Public Use
  Company Number: CA-EISAI MEDICAL RESEARCH-EC-2019-060883

PATIENT
  Age: 77 Year
  Sex: Male

DRUGS (1)
  1. DONEPEZIL. [Suspect]
     Active Substance: DONEPEZIL
     Indication: DEMENTIA
     Route: 048

REACTIONS (2)
  - Hypokinesia [Recovered/Resolved]
  - Arthralgia [Recovered/Resolved]
